FAERS Safety Report 7130912-X (Version None)
Quarter: 2010Q4

REPORT INFORMATION
  Report Type: 
  Country: None (occurrence: None)
  Receive Date: 20101201
  Receipt Date: 20101119
  Transmission Date: 20110411
  Serious: Yes (Hospitalization)
  Sender: FDA-Public Use
  Company Number: FR-SANOFI-AVENTIS-2010SA070524

PATIENT
  Age: 86 Year
  Sex: Female

DRUGS (8)
  1. INDAPAMIDE [Suspect]
     Indication: HYPERTENSION
     Route: 048
     Dates: end: 20100312
  2. FLUOXETINE [Interacting]
     Indication: DEPRESSION
     Route: 048
     Dates: end: 20100312
  3. FLUOXETINE [Interacting]
     Route: 048
     Dates: end: 20100312
  4. FLUOXETINE [Interacting]
     Route: 048
     Dates: start: 20100316, end: 20100318
  5. FLUOXETINE [Interacting]
     Route: 048
     Dates: start: 20100316, end: 20100318
  6. LORAZEPAM [Interacting]
     Indication: ANXIETY
     Dosage: FOR MORE THAN 1 YEAR. DAILY DOSE INCREASED FROM 0.5 MG UP TO 1 MG SINCE 10 DAYS.
     Route: 048
     Dates: end: 20100317
  7. DAFLON [Concomitant]
     Route: 065
  8. SIMVASTATIN [Concomitant]
     Route: 065

REACTIONS (5)
  - DRUG INTERACTION [None]
  - FALL [None]
  - HYPONATRAEMIA [None]
  - INAPPROPRIATE ANTIDIURETIC HORMONE SECRETION [None]
  - PHYSICAL DISABILITY [None]
